FAERS Safety Report 4394159-2 (Version None)
Quarter: 2004Q3

REPORT INFORMATION
  Report Type: 
  Country: None (occurrence: None)
  Receive Date: 20040707
  Receipt Date: 20040623
  Transmission Date: 20050211
  Serious: No
  Sender: FDA-Public Use
  Company Number: 2004S1000132

PATIENT

DRUGS (1)
  1. CUBICIN [Suspect]

REACTIONS (1)
  - RHABDOMYOLYSIS [None]
